FAERS Safety Report 18377907 (Version 1)
Quarter: 2020Q4

REPORT INFORMATION
  Report Type: Spontaneous
  Country: US (occurrence: US)
  Receive Date: 20201013
  Receipt Date: 20201013
  Transmission Date: 20210114
  Serious: Yes (Death)
  Sender: FDA-Public Use
  Company Number: US-PFIZER INC-2019383101

PATIENT
  Age: 65 Year
  Sex: Female
  Weight: 97.07 kg

DRUGS (2)
  1. LYRICA [Suspect]
     Active Substance: PREGABALIN
     Indication: CAUDA EQUINA SYNDROME
     Dosage: UNK
  2. LYRICA [Suspect]
     Active Substance: PREGABALIN
     Indication: SPINAL FUSION SURGERY

REACTIONS (1)
  - Death [Fatal]

NARRATIVE: CASE EVENT DATE: 20201008
